FAERS Safety Report 6630159-7 (Version None)
Quarter: 2010Q1

REPORT INFORMATION
  Report Type: 
  Country: None (occurrence: None)
  Receive Date: 20100311
  Receipt Date: 20100126
  Transmission Date: 20100710
  Serious: Yes (Hospitalization)
  Sender: FDA-Public Use
  Company Number: FR-TEVA-226756ISR

PATIENT
  Sex: Male
  Weight: 78.4 kg

DRUGS (12)
  1. PREDNISOLONE [Suspect]
     Indication: PROSTATE CANCER
     Route: 048
     Dates: start: 20081126
  2. ABIRATERONE ACETATE OR PLACEBO [Suspect]
     Indication: PROSTATE CANCER
     Route: 048
     Dates: start: 20081126, end: 20090113
  3. ABIRATERONE ACETATE OR PLACEBO [Suspect]
     Route: 048
     Dates: start: 20090114, end: 20090224
  4. FENTANYL [Concomitant]
     Indication: CANCER PAIN
     Route: 061
     Dates: start: 20081210
  5. PARACETAMOL [Concomitant]
     Indication: CANCER PAIN
     Route: 048
     Dates: start: 20090213
  6. ENOXAPARIN SODIUM [Concomitant]
     Indication: THROMBOSIS PROPHYLAXIS
     Route: 058
  7. MAG-LAX [Concomitant]
     Indication: CONSTIPATION PROPHYLAXIS
     Route: 048
  8. SENNA ALEXANDRINA [Concomitant]
     Indication: CONSTIPATION PROPHYLAXIS
     Route: 048
     Dates: start: 20081227
  9. LANSOPRAZOLE [Concomitant]
     Indication: PROPHYLAXIS OF NAUSEA AND VOMITING
     Route: 048
     Dates: start: 20090123
  10. FENTANYL CITRATE [Concomitant]
     Indication: CANCER PAIN
     Route: 048
     Dates: start: 20081108
  11. DEXAMETHASONE [Concomitant]
     Indication: PROPHYLAXIS OF NAUSEA AND VOMITING
     Route: 048
     Dates: start: 20081215, end: 20090108
  12. ONDANSETRON [Concomitant]
     Indication: PROPHYLAXIS OF NAUSEA AND VOMITING
     Route: 042
     Dates: start: 20081223, end: 20081229

REACTIONS (2)
  - DEHYDRATION [None]
  - VOMITING [None]
